FAERS Safety Report 8592919-5 (Version None)
Quarter: 2012Q3

REPORT INFORMATION
  Report Type: 
  Country: None (occurrence: None)
  Receive Date: 20120814
  Receipt Date: 20120807
  Transmission Date: 20120928
  Serious: Yes (Hospitalization, Other)
  Sender: FDA-Public Use
  Company Number: US-009507513-2008-184819-NL

PATIENT

DRUGS (3)
  1. MINOCYCLINE HCL [Concomitant]
     Indication: ACNE
     Dosage: FREQUENCY: BID
     Dates: start: 20060919
  2. VITAMINS (UNSPECIFIED) [Concomitant]
     Indication: MEDICAL DIET
     Dosage: FREQUENCY: QD; WITH CALCIUM
  3. NUVARING [Suspect]
     Indication: CONTRACEPTION
     Dosage: DOSE TEXT: 3 WEEKS IN, 1 WEEK OUT, CONTINUING: NO
     Dates: start: 20060916, end: 20061004

REACTIONS (11)
  - DRUG HYPERSENSITIVITY [None]
  - TONSILLAR DISORDER [None]
  - DIARRHOEA [None]
  - CERVICAL DYSPLASIA [None]
  - HUMAN PAPILLOMA VIRUS TEST POSITIVE [None]
  - MIGRAINE [None]
  - HYPERCOAGULATION [None]
  - EAR DISORDER [None]
  - DYSMENORRHOEA [None]
  - HAEMORRHAGIC STROKE [None]
  - PARTIAL SEIZURES [None]
